FAERS Safety Report 6557480-5 (Version None)
Quarter: 2010Q1

REPORT INFORMATION
  Report Type: 
  Country: None (occurrence: None)
  Receive Date: 20100129
  Receipt Date: 20100118
  Transmission Date: 20100710
  Serious: Yes (Hospitalization)
  Sender: FDA-Public Use
  Company Number: JP-ROCHE-678933

PATIENT
  Age: 43 Year
  Sex: Male

DRUGS (3)
  1. CELLCEPT [Suspect]
     Route: 048
  2. MEDROL [Concomitant]
     Route: 065
  3. NEORAL [Concomitant]
     Route: 065

REACTIONS (1)
  - MYELITIS [None]
